FAERS Safety Report 5011049-2 (Version None)
Quarter: 2006Q2

REPORT INFORMATION
  Report Type: 
  Country: None (occurrence: None)
  Receive Date: 20060525
  Receipt Date: 20040729
  Transmission Date: 20061013
  Serious: No
  Sender: FDA-Public Use
  Company Number: US-BRISTOL-MYERS SQUIBB COMPANY-12661278

PATIENT
  Sex: Female

DRUGS (2)
  1. CORGARD [Suspect]
     Dosage: TAKEN PRODUCT FOR SEVERAL YEARS.
     Route: 048
  2. OTHERS (NOS) [Suspect]

REACTIONS (2)
  - ABDOMINAL PAIN [None]
  - DIARRHOEA [None]
